FAERS Safety Report 8492792-X (Version None)
Quarter: 2012Q3

REPORT INFORMATION
  Report Type: 
  Country: None (occurrence: None)
  Receive Date: 20120706
  Receipt Date: 20120702
  Transmission Date: 20120928
  Serious: Yes (Death, Hospitalization)
  Sender: FDA-Public Use
  Company Number: US-PFIZER INC-2012158133

PATIENT
  Age: 87 Year
  Sex: Male

DRUGS (9)
  1. GABAPENTIN [Concomitant]
     Dosage: 600 MG, 3X/DAY
     Route: 048
  2. OXCARBAZEPINE [Interacting]
     Indication: NEURALGIA
     Dosage: 150 MG DAILY
  3. ASPIRIN [Concomitant]
     Dosage: 81MG DAILY
     Route: 048
  4. ATENOLOL [Concomitant]
     Dosage: 100 MG DAILY
     Route: 048
  5. FUROSEMIDE [Concomitant]
     Dosage: 20MG, DAILY
     Route: 048
  6. GLIPIZIDE [Concomitant]
     Dosage: 5MG, DAILY
     Route: 048
  7. LEVOFLOXACIN [Concomitant]
     Indication: CELLULITIS
     Dosage: 500MG, DAILY
     Route: 048
  8. IPRATROPIUM BROMIDE AND ALBUTEROL SULFATE [Concomitant]
     Dosage: 1 PUFF, QID
     Route: 055
  9. SERTRALINE HYDROCHLORIDE [Suspect]
     Dosage: 50MG DAILY
     Route: 048

REACTIONS (2)
  - SEROTONIN SYNDROME [None]
  - DRUG INTERACTION [None]
